FAERS Safety Report 8265570-4 (Version None)
Quarter: 2012Q2

REPORT INFORMATION
  Report Type: 
  Country: None (occurrence: None)
  Receive Date: 20120406
  Receipt Date: 20120327
  Transmission Date: 20120825
  Serious: Yes (Hospitalization)
  Sender: FDA-Public Use
  Company Number: JP-UCBSA-003576

PATIENT
  Age: 67 Year
  Sex: Female

DRUGS (24)
  1. RABEPRAZOLE SODIUM [Concomitant]
     Indication: PROPHYLAXIS AGAINST GASTROINTESTINAL ULCER
     Route: 048
     Dates: start: 20090301
  2. RABEPRAZOLE SODIUM [Concomitant]
     Indication: GASTRIC ULCER
     Route: 048
     Dates: start: 20090301
  3. SCOPOLAMINE BUTYLBROMIDE [Concomitant]
     Indication: GASTRIC ULCER
     Dates: start: 20090301
  4. VALPROATE SODIUM [Concomitant]
     Dates: start: 20100318
  5. CERTOLIZUMAB PEGOL [Suspect]
     Route: 058
     Dates: start: 20091001, end: 20100527
  6. DICLOFENAC SODIUM [Concomitant]
     Route: 054
     Dates: start: 20090301
  7. CANDESARTAN CILEXETIL [Concomitant]
     Indication: BLOOD PRESSURE INCREASED
     Dates: start: 20081001
  8. REBAMIPIDE [Concomitant]
     Indication: PROPHYLAXIS AGAINST GASTROINTESTINAL ULCER
     Route: 048
     Dates: start: 20090301, end: 20090603
  9. CELECOXIB [Concomitant]
     Dates: start: 20090416
  10. KETOPROFEN [Concomitant]
     Dates: start: 20101220
  11. LOXOPROFEN SODIUM [Concomitant]
     Indication: RHEUMATOID ARTHRITIS
     Route: 048
     Dates: start: 20070101, end: 20090101
  12. MOSAPRIDE CITRATE HYDRATE [Concomitant]
     Indication: GASTRIC ULCER
     Dates: start: 20090301
  13. CANDESARTAN CILEXETIL [Concomitant]
     Dates: start: 20081001
  14. METHOTREXATE [Concomitant]
     Indication: RHEUMATOID ARTHRITIS
     Route: 048
     Dates: start: 20070406, end: 20090410
  15. REBAMIPIDE [Concomitant]
     Indication: GASTRIC ULCER
     Route: 048
     Dates: start: 20090301, end: 20090603
  16. PREDNISOLONE FARNESYLATE [Concomitant]
     Dosage: ADEQUATED DOSE
     Dates: start: 20090416
  17. KETOPROFEN [Concomitant]
     Dosage: DAILY DOSE: ONE PATCH
     Dates: start: 20090416
  18. CERTOLIZUMAB PEGOL [Suspect]
     Indication: RHEUMATOID ARTHRITIS
     Route: 058
     Dates: start: 20100722, end: 20111013
  19. METHOTREXATE [Concomitant]
     Dates: start: 20090417
  20. FOLIC ACID [Concomitant]
     Dates: start: 20090419
  21. METHOTREXATE [Concomitant]
     Dates: start: 20100903
  22. ISONIAZID [Concomitant]
     Dates: start: 20090603, end: 20100318
  23. TIQUIZIUM BROMIDE [Concomitant]
     Indication: PROPHYLAXIS AGAINST GASTROINTESTINAL ULCER
     Route: 048
     Dates: start: 20090301, end: 20090603
  24. BETAMETHASONE [Concomitant]
     Dates: start: 20100319

REACTIONS (3)
  - CONTUSION [None]
  - INTRACRANIAL ANEURYSM [None]
  - MENINGIOMA [None]
